FAERS Safety Report 20176488 (Version 3)
Quarter: 2022Q1

REPORT INFORMATION
  Report Type: Report from Study
  Country: FR (occurrence: FR)
  Receive Date: 20211213
  Receipt Date: 20220131
  Transmission Date: 20220423
  Serious: Yes (Hospitalization)
  Sender: FDA-Public Use
  Company Number: FR-EXELIXIS-XL18421047089

PATIENT

DRUGS (11)
  1. CABOZANTINIB [Suspect]
     Active Substance: CABOZANTINIB
     Indication: Neoplasm malignant
     Dosage: 60 MG, QD
     Route: 048
     Dates: start: 20211015, end: 20211207
  2. SIMVASTATIN [Concomitant]
     Active Substance: SIMVASTATIN
  3. HYDROCHLOROTHIAZIDE\RAMIPRIL [Concomitant]
     Active Substance: HYDROCHLOROTHIAZIDE\RAMIPRIL
  4. BROMAZEPAM [Concomitant]
     Active Substance: BROMAZEPAM
  5. BRINTELLIX [Concomitant]
     Active Substance: VORTIOXETINE HYDROBROMIDE
  6. EFFEXOR [Concomitant]
     Active Substance: VENLAFAXINE HYDROCHLORIDE
  7. LAMICTAL [Concomitant]
     Active Substance: LAMOTRIGINE
  8. METFORMIN [Concomitant]
     Active Substance: METFORMIN HYDROCHLORIDE
  9. ACETAMINOPHEN [Concomitant]
     Active Substance: ACETAMINOPHEN
  10. PHLOROGLUCINOL [Concomitant]
     Active Substance: PHLOROGLUCINOL
  11. TRIMEBUTINE MALEATE [Concomitant]
     Active Substance: TRIMEBUTINE MALEATE

REACTIONS (2)
  - Malnutrition [Not Recovered/Not Resolved]
  - Anaemia [Not Recovered/Not Resolved]

NARRATIVE: CASE EVENT DATE: 20211206
